FAERS Safety Report 24592993 (Version 2)
Quarter: 2024Q4

REPORT INFORMATION
  Report Type: Spontaneous
  Country: US (occurrence: US)
  Receive Date: 20241108
  Receipt Date: 20241112
  Transmission Date: 20250114
  Serious: Yes (Other)
  Sender: PFIZER
  Company Number: US-PFIZER INC-202400293670

PATIENT
  Age: 38 Year
  Sex: Female

DRUGS (2)
  1. DEPO-PROVERA [Suspect]
     Active Substance: MEDROXYPROGESTERONE ACETATE
     Indication: Contraception
     Dosage: UNK (1 INJECTION EVERY 12 WEEKS)
     Route: 058
     Dates: start: 20240123, end: 20240123
  2. DEPO-PROVERA [Suspect]
     Active Substance: MEDROXYPROGESTERONE ACETATE
     Dosage: UNK (1 INJECTION EVERY 12 WEEKS)
     Route: 058
     Dates: start: 20240408, end: 20240408

REACTIONS (1)
  - Injection site atrophy [Not Recovered/Not Resolved]

NARRATIVE: CASE EVENT DATE: 20240101
